FAERS Safety Report 7469804-5 (Version None)
Quarter: 2011Q2

REPORT INFORMATION
  Report Type: 
  Country: None (occurrence: None)
  Receive Date: 20110510
  Receipt Date: 20110502
  Transmission Date: 20111010
  Serious: Yes (Other)
  Sender: FDA-Public Use
  Company Number: US-US-EMD SERONO, INC.-7057597

PATIENT
  Sex: Female

DRUGS (5)
  1. REBIF [Suspect]
     Indication: PRODUCT USED FOR UNKNOWN INDICATION
     Route: 058
     Dates: start: 20110302
  2. BIRTH CONTROL [Concomitant]
  3. ANTIDEPRESSANT [Concomitant]
  4. VITAMIN B-12 [Concomitant]
  5. MULTI-VITAMIN [Concomitant]

REACTIONS (2)
  - STRESS [None]
  - OPTIC NEURITIS [None]
